FAERS Safety Report 6981721-3 (Version None)
Quarter: 2010Q3

REPORT INFORMATION
  Report Type: 
  Country: None (occurrence: None)
  Receive Date: 20100914
  Receipt Date: 20091009
  Transmission Date: 20110219
  Serious: Yes (Other)
  Sender: FDA-Public Use
  Company Number: US-PFIZER INC-2009258748

PATIENT
  Sex: Female
  Weight: 95.692 kg

DRUGS (1)
  1. LYRICA [Suspect]
     Indication: PAIN IN EXTREMITY
     Dosage: 75 MG, 1X/DAY
     Route: 048
     Dates: start: 20090730, end: 20090820

REACTIONS (3)
  - BLISTER [None]
  - OEDEMA PERIPHERAL [None]
  - RASH [None]
